FAERS Safety Report 10506667 (Version 1)
Quarter: 2014Q4

REPORT INFORMATION
  Report Type: Spontaneous
  Country: BR (occurrence: None)
  Receive Date: 20141007
  Receipt Date: 20141007
  Transmission Date: 20150528
  Serious: Yes (Other)
  Sender: FDA-Public Use
  Company Number: 7324345

PATIENT
  Age: 39 Year
  Sex: Male

DRUGS (5)
  1. TESTOSTERONE. [Concomitant]
     Active Substance: TESTOSTERONE
  2. VITAMIN D3 [Concomitant]
     Active Substance: CHOLECALCIFEROL
  3. GENOTROPIN [Concomitant]
     Active Substance: SOMATROPIN
  4. EUTHYROX [Suspect]
     Active Substance: LEVOTHYROXINE SODIUM
     Indication: HYPOTHYROIDISM
     Dates: start: 2000, end: 20140819
  5. HYDROCORTISONE. [Concomitant]
     Active Substance: HYDROCORTISONE

REACTIONS (6)
  - Asthenia [None]
  - Constipation [None]
  - Communication disorder [None]
  - No therapeutic response [None]
  - Visual impairment [None]
  - Depression [None]

NARRATIVE: CASE EVENT DATE: 2012
